FAERS Safety Report 7053783-9 (Version None)
Quarter: 2010Q4

REPORT INFORMATION
  Report Type: 
  Country: None (occurrence: None)
  Receive Date: 20101020
  Receipt Date: 20101014
  Transmission Date: 20110411
  Serious: Yes (Hospitalization)
  Sender: FDA-Public Use
  Company Number: B0679355A

PATIENT
  Sex: Male

DRUGS (3)
  1. AUGMENTIN '125' [Suspect]
     Indication: DERMO-HYPODERMITIS
     Dosage: 1G THREE TIMES PER DAY
     Route: 048
     Dates: start: 20100913, end: 20100914
  2. AUGMENTIN '125' [Suspect]
     Indication: DERMO-HYPODERMITIS
     Dosage: 2G THREE TIMES PER DAY
     Route: 042
     Dates: start: 20100914, end: 20100924
  3. GENTAMICIN [Suspect]
     Indication: DERMO-HYPODERMITIS
     Dosage: 240MG PER DAY
     Route: 042
     Dates: start: 20100915, end: 20100921

REACTIONS (6)
  - DIZZINESS [None]
  - FACIAL ASYMMETRY [None]
  - FALL [None]
  - NYSTAGMUS [None]
  - VESTIBULAR DISORDER [None]
  - VISUAL IMPAIRMENT [None]
